FAERS Safety Report 13225929 (Version 1)
Quarter: 2017Q1

REPORT INFORMATION
  Report Type: Spontaneous
  Country: US (occurrence: US)
  Receive Date: 20170210
  Receipt Date: 20170210
  Transmission Date: 20170428
  Serious: Yes (Other)
  Sender: FDA-Public Use
  Company Number: None

PATIENT
  Age: 68 Year
  Weight: 57.15 kg

DRUGS (19)
  1. MAGNESIUM [Concomitant]
     Active Substance: MAGNESIUM
  2. LEVOXYL [Concomitant]
     Active Substance: LEVOTHYROXINE SODIUM
  3. XIIDRA [Suspect]
     Active Substance: LIFITEGRAST
     Indication: DRY EYE
     Dosage: ?          QUANTITY:60 DROP(S);?
     Route: 047
     Dates: start: 20170201, end: 20170206
  4. METOPROLOL. [Concomitant]
     Active Substance: METOPROLOL
  5. PROCARDIA XL [Concomitant]
     Active Substance: NIFEDIPINE
  6. BACLOFEN. [Concomitant]
     Active Substance: BACLOFEN
  7. FISH OIL [Concomitant]
     Active Substance: FISH OIL
  8. ASA [Concomitant]
     Active Substance: ASPIRIN
  9. VITAMIN D3 [Concomitant]
     Active Substance: CHOLECALCIFEROL
  10. SYSTANE (HYPROMELLOSE 2910 (4000 MPA.S)) [Concomitant]
     Active Substance: HYPROMELLOSE 2910 (4000 MPA.S)
  11. FLEXERIL [Concomitant]
     Active Substance: CYCLOBENZAPRINE HYDROCHLORIDE
  12. BENADRYL [Concomitant]
     Active Substance: DIPHENHYDRAMINE HYDROCHLORIDE
  13. BIOTENE NOS [Concomitant]
     Active Substance: CETYLPYRIDINIUM CHLORIDE OR SODIUM FLUORIDE OR SODIUM MONOFLUOROPHOSPHATE OR GLUCOSE OXIDASE\LACTOFERRIN\LACTOPEROXIDASE BOVINE\LYSOZYME
  14. ESTRACE [Concomitant]
     Active Substance: ESTRADIOL
  15. CALCIUM [Concomitant]
     Active Substance: CALCIUM
  16. AVONEX [Concomitant]
     Active Substance: INTERFERON BETA-1A
  17. SIMVASTATIN. [Concomitant]
     Active Substance: SIMVASTATIN
  18. TYLENOL [Concomitant]
     Active Substance: ACETAMINOPHEN
  19. MULTIVITAMIN [Concomitant]
     Active Substance: VITAMINS

REACTIONS (1)
  - Eye ulcer [None]

NARRATIVE: CASE EVENT DATE: 20170204
